FAERS Safety Report 8072140-X (Version None)
Quarter: 2012Q1

REPORT INFORMATION
  Report Type: 
  Country: None (occurrence: None)
  Receive Date: 20120124
  Receipt Date: 20120124
  Transmission Date: 20120608
  Serious: Yes (Life-Threatening, Hospitalization)
  Sender: FDA-Public Use
  Company Number: None

PATIENT
  Age: 76 Year
  Sex: Male
  Weight: 71.4 kg

DRUGS (2)
  1. PROPOFOL [Suspect]
     Indication: SURGERY
     Dosage: 150 MG IV
     Route: 042
     Dates: start: 20111102, end: 20111102
  2. PROPOFOL [Suspect]
     Indication: CARDIOVASCULAR DISORDER
     Dosage: 150 MG IV
     Route: 042
     Dates: start: 20111102, end: 20111102

REACTIONS (5)
  - SOMNOLENCE [None]
  - ELECTROCARDIOGRAM ABNORMAL [None]
  - SINUS ARREST [None]
  - HYPOTENSION [None]
  - BRADYCARDIA [None]
